FAERS Safety Report 7935785-0 (Version None)
Quarter: 2011Q4

REPORT INFORMATION
  Report Type: 
  Country: None (occurrence: None)
  Receive Date: 20111123
  Receipt Date: 20111110
  Transmission Date: 20120403
  Serious: Yes (Hospitalization, Other)
  Sender: FDA-Public Use
  Company Number: US-ELI_LILLY_AND_COMPANY-US201109005461

PATIENT
  Sex: Female

DRUGS (10)
  1. METOPROLOL TARTRATE [Concomitant]
  2. FORTEO [Suspect]
     Dosage: 20 UG, QD
     Route: 065
  3. ZOCOR [Concomitant]
  4. DIOVAN [Concomitant]
  5. HUMALOG [Concomitant]
     Indication: DIABETES MELLITUS
     Dosage: UNK
     Route: 065
     Dates: start: 20040101
  6. FORTEO [Suspect]
     Dosage: 20 UG, QD
     Route: 065
  7. ASPIRIN [Concomitant]
  8. FORTEO [Suspect]
     Indication: OSTEOPOROSIS
     Dosage: 20 UG, QD
     Route: 065
     Dates: start: 20110909
  9. LANTUS [Concomitant]
  10. VITAMIN D [Concomitant]

REACTIONS (8)
  - PAIN IN EXTREMITY [None]
  - FATIGUE [None]
  - SURGERY [None]
  - INTENTIONAL DRUG MISUSE [None]
  - INCISION SITE OEDEMA [None]
  - HIP ARTHROPLASTY [None]
  - MOVEMENT DISORDER [None]
  - ARTHRALGIA [None]
